FAERS Safety Report 14949182 (Version 1)
Quarter: 2018Q2

REPORT INFORMATION
  Report Type: Spontaneous
  Country: US (occurrence: US)
  Receive Date: 20180529
  Receipt Date: 20180529
  Transmission Date: 20180711
  Serious: No
  Sender: FDA-Public Use
  Company Number: US-MITSUBISHI TANABE PHARMA CORPORATION-MPE2018-0011010

PATIENT
  Sex: Male
  Weight: 61.2 kg

DRUGS (1)
  1. RADICAVA [Suspect]
     Active Substance: EDARAVONE
     Indication: AMYOTROPHIC LATERAL SCLEROSIS
     Route: 042
     Dates: start: 20180201

REACTIONS (5)
  - Asthenia [Unknown]
  - Drug ineffective [Unknown]
  - Fall [Unknown]
  - Dyspnoea [Unknown]
  - Disease progression [Unknown]
